FAERS Safety Report 20201512 (Version 1)
Quarter: 2021Q4

REPORT INFORMATION
  Report Type: Spontaneous
  Country: US (occurrence: US)
  Receive Date: 20211217
  Receipt Date: 20211217
  Transmission Date: 20220303
  Serious: No
  Sender: FDA-Public Use
  Company Number: US-HQ SPECIALTY-US-2020INT000152

PATIENT

DRUGS (1)
  1. LEVETIRACETAM [Suspect]
     Active Substance: LEVETIRACETAM
     Indication: Seizure
     Dosage: 500/100
     Route: 042

REACTIONS (3)
  - Swelling [Unknown]
  - Skin irritation [Unknown]
  - Extravasation [Unknown]
